FAERS Safety Report 8859618 (Version 1)
Quarter: 2012Q4

REPORT INFORMATION
  Report Type: Spontaneous
  Country: US (occurrence: None)
  Receive Date: 20121022
  Receipt Date: 20121022
  Transmission Date: 20130627
  Serious: Yes (Death, Hospitalization)
  Sender: FDA-Public Use
  Company Number: 2012US-004427

PATIENT
  Age: 80 Year
  Sex: Male
  Weight: 64 kg

DRUGS (15)
  1. OMONTYS (PEGINESATIDE) SOLUTION FOR INJECTION [Suspect]
     Dosage: 6 mg, Q monthly, Intravenous
     Route: 042
     Dates: start: 20120915, end: 20120915
  2. OMONTYS (PEGINESATIDE) SOLUTION FOR INJECTION [Suspect]
     Dosage: 4 mg, Q monthly, Intravenous
     Route: 042
     Dates: start: 20120814, end: 20120814
  3. HEPARIN (HEPARIN) [Concomitant]
  4. CINNAMON (CINNAMOMUM VERUM) [Concomitant]
  5. ALDACTONE (SPIRONOLACTONE) [Concomitant]
  6. AMARYL (GLIMEPIRIDE) [Concomitant]
  7. COREG (CARVEDILOL) [Concomitant]
  8. COUMADIN (WARFARIN SODIUM) [Concomitant]
  9. IMDUR (ISOSORBIDE MONONITRATE) [Concomitant]
  10. LANOXIN (DIGOXIN) [Concomitant]
  11. LEVOXYL (LEVOTHYROXINE SODIUM) [Concomitant]
  12. PRAVACHOL (PRAVASTATIN SODIUM) [Concomitant]
  13. ZAROXOLYN (METOLAZONE) [Concomitant]
  14. FERRLECIT (FERRIC SODIUM GLUCONATE COMPLEX) [Concomitant]
  15. EPOGEN (EPOETIN ALFA) [Concomitant]

REACTIONS (7)
  - Septic shock [None]
  - Clostridium difficile colitis [None]
  - Megacolon [None]
  - Staphylococcal infection [None]
  - Asthenia [None]
  - Cardiac failure congestive [None]
  - Dyspnoea [None]
